FAERS Safety Report 10432292 (Version 2)
Quarter: 2015Q1

REPORT INFORMATION
  Report Type: Spontaneous
  Country: US (occurrence: None)
  Receive Date: 20140815
  Receipt Date: 20150129
  Transmission Date: 20150720
  Serious: No
  Sender: FDA-Public Use
  Company Number: A-NJ2014-97903

PATIENT
  Age: 56 Year
  Sex: Female

DRUGS (6)
  1. SILDENAFIL. [Concomitant]
     Active Substance: SILDENAFIL
  2. OPSUMIT [Suspect]
     Active Substance: MACITENTAN
     Indication: PULMONARY HYPERTENSION
     Route: 048
     Dates: start: 20140323, end: 20140925
  3. OMEPRAZOLE. [Concomitant]
     Active Substance: OMEPRAZOLE
  4. VITAMIN B 12 (VITAMIN B NOS) [Concomitant]
  5. LEVAQUIN [Concomitant]
     Active Substance: LEVOFLOXACIN
  6. REVATIO (SILDENAFIL CITRATE) [Concomitant]

REACTIONS (9)
  - Bronchitis [None]
  - Musculoskeletal stiffness [None]
  - Sinusitis [None]
  - Bloody discharge [None]
  - Influenza like illness [None]
  - Back pain [None]
  - Nasopharyngitis [None]
  - Arthralgia [None]
  - Cough [None]

NARRATIVE: CASE EVENT DATE: 20140326
